FAERS Safety Report 25681412 (Version 1)
Quarter: 2025Q3

REPORT INFORMATION
  Report Type: Spontaneous
  Country: US (occurrence: US)
  Receive Date: 20250814
  Receipt Date: 20250814
  Transmission Date: 20251021
  Serious: No
  Sender: AMERICAN REGENT
  Company Number: US-AMERICAN REGENT INC-2025002467

PATIENT
  Sex: Female
  Weight: 69 kg

DRUGS (8)
  1. FERRIC CARBOXYMALTOSE [Suspect]
     Active Substance: FERRIC CARBOXYMALTOSE
     Indication: Product used for unknown indication
     Route: 042
     Dates: start: 20250601, end: 20250601
  2. DILTIAZEM [Concomitant]
     Active Substance: DILTIAZEM
     Indication: Hypertension
     Route: 065
  3. ELIQUIS [Concomitant]
     Active Substance: APIXABAN
     Indication: Product used for unknown indication
     Route: 065
  4. HYDROCHLOROTHIAZIDE [Concomitant]
     Active Substance: HYDROCHLOROTHIAZIDE
     Indication: Product used for unknown indication
     Route: 065
  5. LOSARTAN [Concomitant]
     Active Substance: LOSARTAN
     Indication: Product used for unknown indication
     Route: 065
  6. KCL [Concomitant]
     Active Substance: POTASSIUM CHLORIDE
     Indication: Product used for unknown indication
     Route: 065
  7. REPATHA [Concomitant]
     Active Substance: EVOLOCUMAB
     Indication: Product used for unknown indication
     Route: 058
  8. SERTRALINE [Concomitant]
     Active Substance: SERTRALINE HYDROCHLORIDE
     Indication: Product used for unknown indication
     Route: 065

REACTIONS (1)
  - Product dose omission issue [Unknown]
